FAERS Safety Report 8962220 (Version 1)
Quarter: 2012Q4

REPORT INFORMATION
  Report Type: 
  Country: US (occurrence: US)
  Receive Date: 20121211
  Receipt Date: 20121211
  Transmission Date: 20130627
  Serious: No
  Sender: FDA-Public Use
  Company Number: US-009507513-1212USA002305

PATIENT
  Age: 71 None
  Sex: Female
  Weight: 54.42 kg

DRUGS (2)
  1. LOTRIMIN ULTRA [Suspect]
     Indication: TINEA PEDIS
     Dosage: UNK, bid
     Route: 061
     Dates: start: 20120820, end: 20120903
  2. LOTRIMIN ULTRA [Suspect]
     Indication: MEDICAL OBSERVATION
     Dosage: UNK, qd
     Route: 061
     Dates: start: 201209

REACTIONS (2)
  - Drug ineffective [Unknown]
  - Incorrect drug administration duration [Unknown]
